FAERS Safety Report 5936825-0 (Version None)
Quarter: 2008Q4

REPORT INFORMATION
  Report Type: 
  Country: None (occurrence: None)
  Receive Date: 20081029
  Receipt Date: 20081020
  Transmission Date: 20090506
  Serious: Yes (Other)
  Sender: FDA-Public Use
  Company Number: 08H-163-0315098-00

PATIENT
  Age: 17 Month
  Sex: Female
  Weight: 9 kg

DRUGS (6)
  1. LIDOCAINE INJECTIN (LIDOCAINE HYDROCHLORIDE INJECTON LIDOCAINE HYDROCH [Suspect]
     Indication: ENDOTRACHEAL INTUBATION
     Dosage: 13 MG, INTRAVENOUS
     Route: 042
  2. ALBUTEROL [Concomitant]
  3. MIDAZOLAM HCL [Concomitant]
  4. SEVOFLURANE [Concomitant]
  5. 50 % NITROUS OXIDE (NITROUS OXIDE) [Concomitant]
  6. OXYGEN (OXYGEN) [Concomitant]

REACTIONS (3)
  - AIRWAY COMPLICATION OF ANAESTHESIA [None]
  - BRONCHOSPASM [None]
  - WHEEZING [None]
